FAERS Safety Report 15562412 (Version 3)
Quarter: 2019Q4

REPORT INFORMATION
  Report Type: Report from Study
  Country: US (occurrence: US)
  Receive Date: 20181029
  Receipt Date: 20191210
  Transmission Date: 20200122
  Serious: Yes (Other)
  Sender: FDA-Public Use
  Company Number: US-SA-2018SA051894

PATIENT
  Age: 55 Year
  Sex: Male

DRUGS (5)
  1. ALEMTUZUMAB [Suspect]
     Active Substance: ALEMTUZUMAB
     Indication: MULTIPLE SCLEROSIS
     Dosage: 12 MG,QD
     Route: 041
     Dates: start: 20180207, end: 20180209
  2. ACICLOVIR [Concomitant]
     Active Substance: ACYCLOVIR
     Indication: ADVERSE DRUG REACTION
     Dosage: 200 MG,QD
  3. LYRICA [Concomitant]
     Active Substance: PREGABALIN
     Indication: HYPOAESTHESIA
     Dosage: 75 MG,QD
     Dates: start: 20060117
  4. ALEMTUZUMAB [Suspect]
     Active Substance: ALEMTUZUMAB
     Dosage: 12 MG,QD
     Route: 041
     Dates: start: 20170130, end: 20170203
  5. ERGOCALCIFEROL. [Concomitant]
     Active Substance: ERGOCALCIFEROL
     Dosage: UNK UNK,UNK

REACTIONS (9)
  - Immunosuppression [Unknown]
  - Molluscum contagiosum [Recovering/Resolving]
  - Migraine [Recovered/Resolved]
  - Feeling abnormal [Recovered/Resolved]
  - CD4 lymphocytes decreased [Recovering/Resolving]
  - Lymphocyte count decreased [Recovering/Resolving]
  - Neuropathy peripheral [Recovering/Resolving]
  - Drug monitoring procedure not performed [Unknown]
  - Taste disorder [Recovered/Resolved]

NARRATIVE: CASE EVENT DATE: 2018
